FAERS Safety Report 17128551 (Version 1)
Quarter: 2019Q4

REPORT INFORMATION
  Report Type: Spontaneous
  Country: US (occurrence: US)
  Receive Date: 20191206
  Receipt Date: 20191206
  Transmission Date: 20200122
  Serious: Yes (Other)
  Sender: FDA-Public Use
  Company Number: None

PATIENT
  Age: 60 Year
  Sex: Female

DRUGS (1)
  1. OPTISON PERFLUTREN PROTEIN-TYPE A MICROSPHERES [Suspect]
     Active Substance: HUMAN ALBUMIN MICROSPHERES
     Indication: DIAGNOSTIC PROCEDURE
     Route: 042
     Dates: start: 20191029, end: 20191029

REACTIONS (1)
  - Back pain [None]

NARRATIVE: CASE EVENT DATE: 20191029
